FAERS Safety Report 12632257 (Version 2)
Quarter: 2016Q3

REPORT INFORMATION
  Report Type: Spontaneous
  Country: US (occurrence: US)
  Receive Date: 20160808
  Receipt Date: 20160808
  Transmission Date: 20161109
  Serious: No
  Sender: FDA-Public Use
  Company Number: US-BEH-2016062264

PATIENT
  Sex: Female
  Weight: 117 kg

DRUGS (23)
  1. HIZENTRA [Suspect]
     Active Substance: HUMAN IMMUNOGLOBULIN G
     Indication: IMMUNODEFICIENCY COMMON VARIABLE
     Route: 058
  2. ARICEPT [Concomitant]
     Active Substance: DONEPEZIL HYDROCHLORIDE
  3. MELATONIN [Concomitant]
     Active Substance: MELATONIN
  4. DIPHENHYDRAMINE. [Concomitant]
     Active Substance: DIPHENHYDRAMINE
  5. METOPROLOL. [Concomitant]
     Active Substance: METOPROLOL
  6. MIRALAX [Concomitant]
     Active Substance: POLYETHYLENE GLYCOL 3350
  7. HIZENTRA [Suspect]
     Active Substance: HUMAN IMMUNOGLOBULIN G
     Route: 058
  8. ZYRTEC [Concomitant]
     Active Substance: CETIRIZINE HYDROCHLORIDE
  9. SENOKOT [Concomitant]
     Active Substance: SENNOSIDES
  10. HIZENTRA [Suspect]
     Active Substance: HUMAN IMMUNOGLOBULIN G
     Route: 058
     Dates: start: 20110425
  11. LANTUS [Concomitant]
     Active Substance: INSULIN GLARGINE
  12. RISPERDAL [Concomitant]
     Active Substance: RISPERIDONE
  13. EPIPEN [Concomitant]
     Active Substance: EPINEPHRINE
  14. LIDODERM [Concomitant]
     Active Substance: LIDOCAINE
  15. VALSARTAN. [Concomitant]
     Active Substance: VALSARTAN
  16. COUMADIN [Concomitant]
     Active Substance: WARFARIN SODIUM
  17. NITROSTAT [Concomitant]
     Active Substance: NITROGLYCERIN
  18. FOLIC ACID. [Concomitant]
     Active Substance: FOLIC ACID
  19. CLONIDINE. [Concomitant]
     Active Substance: CLONIDINE
  20. NOVOLOG [Concomitant]
     Active Substance: INSULIN ASPART
  21. VITAMIN D [Concomitant]
     Active Substance: CHOLECALCIFEROL
  22. VITAMIN B [Concomitant]
     Active Substance: VITAMIN B
  23. BD INSULIN [Concomitant]

REACTIONS (1)
  - Urinary tract infection [Unknown]
